FAERS Safety Report 6766593-4 (Version None)
Quarter: 2010Q2

REPORT INFORMATION
  Report Type: 
  Country: None (occurrence: None)
  Receive Date: 20100606
  Receipt Date: 20100525
  Transmission Date: 20101027
  Serious: Yes (Other)
  Sender: FDA-Public Use
  Company Number: 2010SP001568

PATIENT
  Age: 2 Year
  Sex: Male

DRUGS (1)
  1. ALVESCO [Suspect]
     Dosage: INHALATION

REACTIONS (1)
  - ELECTROCARDIOGRAM QT PROLONGED [None]
